FAERS Safety Report 8087294-9 (Version None)
Quarter: 2012Q1

REPORT INFORMATION
  Report Type: 
  Country: None (occurrence: None)
  Receive Date: 20120128
  Receipt Date: 20110512
  Transmission Date: 20120608
  Serious: No
  Sender: FDA-Public Use
  Company Number: US-ABBOTT-11P-163-0725961-00

PATIENT
  Sex: Female
  Weight: 94.432 kg

DRUGS (2)
  1. HUMIRA [Suspect]
     Indication: RHEUMATOID ARTHRITIS
     Dates: end: 20110401
  2. HUMIRA [Suspect]
     Indication: RHEUMATOID ARTHRITIS
     Dates: start: 20100101, end: 20100101

REACTIONS (5)
  - CALCINOSIS [None]
  - DRUG INEFFECTIVE [None]
  - PSORIASIS [None]
  - PAIN [None]
  - FOOT DEFORMITY [None]
